FAERS Safety Report 4648770-1 (Version None)
Quarter: 2005Q2

REPORT INFORMATION
  Report Type: 
  Country: None (occurrence: None)
  Receive Date: 20050429
  Receipt Date: 20050408
  Transmission Date: 20051028
  Serious: Yes (Hospitalization)
  Sender: FDA-Public Use
  Company Number: JP-MERCK-0504USA01533

PATIENT
  Age: 54 Year
  Sex: Male

DRUGS (7)
  1. PEPCID RPD [Suspect]
     Indication: PROPHYLAXIS AGAINST GASTROINTESTINAL ULCER
     Route: 048
     Dates: start: 20050402, end: 20050404
  2. ZITHROMAC [Suspect]
     Indication: INFECTION
     Route: 048
     Dates: start: 20050402, end: 20050404
  3. ZESULAN [Concomitant]
     Indication: RHINORRHOEA
     Route: 048
     Dates: start: 20050402, end: 20050404
  4. CODEINE PHOSPHATE [Concomitant]
     Indication: PYREXIA
     Route: 048
     Dates: start: 20050402, end: 20050404
  5. CODEINE PHOSPHATE [Concomitant]
     Route: 065
     Dates: start: 20050328, end: 20050330
  6. CODEINE PHOSPHATE [Concomitant]
     Indication: PHARYNGOLARYNGEAL PAIN
     Route: 048
     Dates: start: 20050402, end: 20050404
  7. CODEINE PHOSPHATE [Concomitant]
     Route: 065
     Dates: start: 20050328, end: 20050330

REACTIONS (1)
  - MENTAL STATUS CHANGES [None]
